FAERS Safety Report 9841568 (Version 1)
Quarter: 2014Q1

REPORT INFORMATION
  Report Type: Spontaneous
  Country: PT (occurrence: PT)
  Receive Date: 20140124
  Receipt Date: 20140124
  Transmission Date: 20141002
  Serious: Yes (Hospitalization)
  Sender: FDA-Public Use
  Company Number: PT-B.I. PHARMACEUTICALS,INC./RIDGEFIELD-2014-BI-02657PO

PATIENT
  Sex: 0

DRUGS (3)
  1. PRADAXA [Suspect]
  2. PRADAXA [Suspect]
  3. ENOXAPARIN [Concomitant]

REACTIONS (3)
  - Road traffic accident [Unknown]
  - Haematoma [Unknown]
  - Haemorrhage [Unknown]
